FAERS Safety Report 24211965 (Version 1)
Quarter: 2024Q3

REPORT INFORMATION
  Report Type: Report from Study
  Country: US (occurrence: US)
  Receive Date: 20240814
  Receipt Date: 20240814
  Transmission Date: 20241016
  Serious: Yes (Other)
  Sender: ABBVIE
  Company Number: US-ABBVIE-5878987

PATIENT
  Sex: Female

DRUGS (4)
  1. SYNTHROID [Suspect]
     Active Substance: LEVOTHYROXINE SODIUM
     Indication: Hypothyroidism
     Dosage: DOSE: 175 MCG
     Route: 048
     Dates: start: 202309
  2. SYNTHROID [Suspect]
     Active Substance: LEVOTHYROXINE SODIUM
     Indication: Hypothyroidism
     Dosage: DOSE: 185 MCG
     Route: 048
  3. BIOTIN [Concomitant]
     Active Substance: BIOTIN
     Indication: Product used for unknown indication
  4. VITAMIN B12 [Concomitant]
     Active Substance: CYANOCOBALAMIN
     Indication: Product used for unknown indication

REACTIONS (11)
  - Portal vein thrombosis [Unknown]
  - Muscle twitching [Unknown]
  - Tremor [Unknown]
  - Vision blurred [Unknown]
  - Eye irritation [Unknown]
  - Ocular hyperaemia [Unknown]
  - Psychomotor hyperactivity [Unknown]
  - Insomnia [Unknown]
  - Palpitations [Unknown]
  - Peripheral swelling [Unknown]
  - Amnesia [Unknown]

NARRATIVE: CASE EVENT DATE: 20210101
